FAERS Safety Report 7817140-7 (Version None)
Quarter: 2011Q4

REPORT INFORMATION
  Report Type: 
  Country: None (occurrence: None)
  Receive Date: 20111017
  Receipt Date: 20111017
  Transmission Date: 20120403
  Serious: Yes (Death)
  Sender: FDA-Public Use
  Company Number: None

PATIENT
  Age: 70 Year
  Sex: Male
  Weight: 59 kg

DRUGS (1)
  1. PRADAXA [Suspect]
     Dosage: 150MG
     Route: 048

REACTIONS (9)
  - CARDIO-RESPIRATORY ARREST [None]
  - ANAEMIA [None]
  - RENAL FAILURE ACUTE [None]
  - HAEMATEMESIS [None]
  - ELECTROLYTE IMBALANCE [None]
  - HYPERKALAEMIA [None]
  - HYPOTENSION [None]
  - HAEMATURIA [None]
  - COAGULOPATHY [None]
